FAERS Safety Report 8099301-8 (Version None)
Quarter: 2012Q1

REPORT INFORMATION
  Report Type: 
  Country: None (occurrence: None)
  Receive Date: 20120131
  Receipt Date: 20120125
  Transmission Date: 20120608
  Serious: Yes (Death, Hospitalization)
  Sender: FDA-Public Use
  Company Number: JP-JNJFOC-20120112268

PATIENT
  Age: 57 Year
  Sex: Female

DRUGS (13)
  1. FLUCONAZOLE [Concomitant]
     Indication: ANTIBIOTIC PROPHYLAXIS
     Route: 065
  2. DEXAMETHASONE [Suspect]
     Indication: NON-HODGKIN'S LYMPHOMA
     Route: 042
  3. MICAFUNGIN [Concomitant]
     Indication: FUNGAL INFECTION
     Route: 065
  4. LEUSTATIN [Suspect]
     Indication: NON-HODGKIN'S LYMPHOMA
     Route: 041
     Dates: start: 20060101
  5. RITUXIMAB [Suspect]
     Indication: NON-HODGKIN'S LYMPHOMA
     Route: 041
     Dates: start: 20060101
  6. DAUNORUBICIN HCL [Suspect]
     Indication: NON-HODGKIN'S LYMPHOMA
     Route: 042
  7. CYTARABINE [Suspect]
     Indication: NON-HODGKIN'S LYMPHOMA
     Route: 065
  8. ETOPOSIDE [Suspect]
     Indication: NON-HODGKIN'S LYMPHOMA
     Route: 042
  9. DORIPENEM [Concomitant]
     Indication: FUNGAL INFECTION
     Route: 065
  10. CYCLOPHOSPHAMIDE [Suspect]
     Indication: NON-HODGKIN'S LYMPHOMA
     Route: 042
  11. VINCRISTINE [Suspect]
     Indication: NON-HODGKIN'S LYMPHOMA
     Route: 065
  12. COTRIM [Concomitant]
     Indication: ANTIBIOTIC PROPHYLAXIS
     Route: 065
  13. PREDNISOLONE [Suspect]
     Indication: NON-HODGKIN'S LYMPHOMA
     Route: 065

REACTIONS (6)
  - PNEUMONIA [None]
  - ANAEMIA [None]
  - ACUTE RESPIRATORY FAILURE [None]
  - NEUTROPENIA [None]
  - SHOCK [None]
  - HAEMOPTYSIS [None]
